FAERS Safety Report 16371913 (Version 1)
Quarter: 2019Q2

REPORT INFORMATION
  Report Type: Spontaneous
  Country: US (occurrence: US)
  Receive Date: 20190424
  Receipt Date: 20190424
  Transmission Date: 20190711
  Serious: No
  Sender: FDA-Public Use
  Company Number: None

PATIENT
  Age: 3 Year
  Sex: Female

DRUGS (4)
  1. TETRABENAZINE 12.5MG [Suspect]
     Active Substance: TETRABENAZINE
     Indication: DYSTONIA
     Dosage: ?          OTHER FREQUENCY:OTHER;?
     Route: 048
     Dates: start: 20190424
  2. VALIUM [Concomitant]
     Active Substance: DIAZEPAM
  3. CLONIDINE. [Concomitant]
     Active Substance: CLONIDINE
  4. RISPERIDONE. [Concomitant]
     Active Substance: RISPERIDONE

REACTIONS (1)
  - Off label use [None]

NARRATIVE: CASE EVENT DATE: 20190424
